FAERS Safety Report 13540964 (Version 1)
Quarter: 2017Q2

REPORT INFORMATION
  Report Type: Spontaneous
  Country: RU (occurrence: RU)
  Receive Date: 20170512
  Receipt Date: 20170512
  Transmission Date: 20170830
  Serious: Yes (Other)
  Sender: FDA-Public Use
  Company Number: RU-ASTRAZENECA-2017SE50256

PATIENT
  Age: 52 Year
  Sex: Male
  Weight: 105 kg

DRUGS (2)
  1. BRILINTA [Suspect]
     Active Substance: TICAGRELOR
     Indication: MYOCARDIAL INFARCTION
     Route: 048
     Dates: start: 201607
  2. CARDICET [Concomitant]

REACTIONS (2)
  - Cardiac aneurysm [Not Recovered/Not Resolved]
  - Tachycardia [Not Recovered/Not Resolved]
